FAERS Safety Report 24335915 (Version 1)
Quarter: 2024Q3

REPORT INFORMATION
  Report Type: Report from Study
  Country: ID (occurrence: ID)
  Receive Date: 20240919
  Receipt Date: 20240919
  Transmission Date: 20241017
  Serious: No
  Sender: ROCHE
  Company Number: ID-ROCHE-3427244

PATIENT
  Age: 55 Year
  Sex: Male

DRUGS (9)
  1. OSELTAMIVIR [Suspect]
     Active Substance: OSELTAMIVIR
     Indication: COVID-19
     Route: 065
  2. LANSOPRAZOLE [Concomitant]
     Active Substance: LANSOPRAZOLE
  3. CLOBAZAM [Concomitant]
     Active Substance: CLOBAZAM
  4. VITAMIN C [Concomitant]
     Active Substance: ASCORBIC ACID
  5. RAMIPRIL [Concomitant]
     Active Substance: RAMIPRIL
  6. EXTRACE [Concomitant]
  7. POVIDONE-IODINE [Concomitant]
     Active Substance: POVIDONE-IODINE
  8. HEPARIN [Concomitant]
     Active Substance: HEPARIN SODIUM
  9. AZITROMISIN [Concomitant]

REACTIONS (3)
  - Off label use [Unknown]
  - Insomnia [Unknown]
  - Aspartate aminotransferase increased [Unknown]
